FAERS Safety Report 20046633 (Version 4)
Quarter: 2021Q4

REPORT INFORMATION
  Report Type: Spontaneous
  Country: PT (occurrence: PT)
  Receive Date: 20211109
  Receipt Date: 20211228
  Transmission Date: 20220303
  Serious: Yes (Hospitalization, Other)
  Sender: FDA-Public Use
  Company Number: PT-AUROBINDO-AUR-APL-2021-045720

PATIENT
  Age: 80 Year
  Sex: Male

DRUGS (10)
  1. LINEZOLID [Interacting]
     Active Substance: LINEZOLID
     Indication: Antibiotic therapy
     Dosage: UNK
     Route: 065
  2. LINEZOLID [Interacting]
     Active Substance: LINEZOLID
     Indication: Staphylococcal infection
  3. LINEZOLID [Interacting]
     Active Substance: LINEZOLID
     Indication: Enterococcal infection
  4. LINEZOLID [Interacting]
     Active Substance: LINEZOLID
     Indication: Enterococcal infection
  5. LINEZOLID [Interacting]
     Active Substance: LINEZOLID
     Indication: Skin infection
  6. LINEZOLID [Interacting]
     Active Substance: LINEZOLID
     Indication: Postoperative wound infection
  7. VENLAFAXINE [Interacting]
     Active Substance: VENLAFAXINE HYDROCHLORIDE
     Indication: Hip arthroplasty
     Dosage: UNK
     Route: 065
  8. VENLAFAXINE [Interacting]
     Active Substance: VENLAFAXINE HYDROCHLORIDE
     Indication: Chronic obstructive pulmonary disease
  9. VENLAFAXINE [Interacting]
     Active Substance: VENLAFAXINE HYDROCHLORIDE
     Indication: Depression
  10. VANCOMYCIN [Concomitant]
     Active Substance: VANCOMYCIN
     Indication: Product used for unknown indication
     Dosage: UNK
     Route: 065

REACTIONS (7)
  - Lactic acidosis [Recovered/Resolved]
  - Serotonin syndrome [Recovered/Resolved]
  - Labelled drug-drug interaction medication error [Recovered/Resolved]
  - Hyperlactacidaemia [Recovered/Resolved]
  - Potentiating drug interaction [Recovered/Resolved]
  - Toxicity to various agents [Recovered/Resolved]
  - Drug interaction [Recovered/Resolved]
